FAERS Safety Report 10017855 (Version 1)
Quarter: 2014Q1

REPORT INFORMATION
  Report Type: Spontaneous
  Country: US (occurrence: US)
  Receive Date: 20140318
  Receipt Date: 20140318
  Transmission Date: 20141002
  Serious: Yes (Hospitalization, Other)
  Sender: FDA-Public Use
  Company Number: 2013SP002269

PATIENT
  Age: 44 Year
  Sex: Male

DRUGS (2)
  1. CISPLATIN [Suspect]
     Indication: PANCREATIC CARCINOMA METASTATIC
  2. GEMCITABINE [Concomitant]
     Indication: PANCREATIC CARCINOMA METASTATIC

REACTIONS (10)
  - Aortic dissection [Recovering/Resolving]
  - Carotid artery dissection [Recovering/Resolving]
  - Peripheral artery dissection [Recovering/Resolving]
  - Blood pressure increased [Recovering/Resolving]
  - Pleural effusion [Recovering/Resolving]
  - Atelectasis [Recovering/Resolving]
  - Pain [Recovering/Resolving]
  - Cough [Recovering/Resolving]
  - Dyspnoea [Recovering/Resolving]
  - Asthenia [Recovering/Resolving]
